FAERS Safety Report 6671681-7 (Version None)
Quarter: 2010Q2

REPORT INFORMATION
  Report Type: 
  Country: None (occurrence: None)
  Receive Date: 20100407
  Receipt Date: 20100330
  Transmission Date: 20101027
  Serious: Yes (Hospitalization)
  Sender: FDA-Public Use
  Company Number: US-TEVA-229575USA

PATIENT
  Sex: Female

DRUGS (2)
  1. PARAGARD T 380A [Suspect]
     Indication: CONTRACEPTION
     Dates: start: 20100115, end: 20100228
  2. FUROSEMIDE [Concomitant]
     Indication: OEDEMA

REACTIONS (7)
  - CHILLS [None]
  - MENORRHAGIA [None]
  - METRORRHAGIA [None]
  - PYREXIA [None]
  - STREPTOCOCCAL INFECTION [None]
  - UTERINE LEIOMYOMA [None]
  - UTERINE SPASM [None]
